FAERS Safety Report 5145999-3 (Version None)
Quarter: 2006Q4

REPORT INFORMATION
  Report Type: 
  Country: None (occurrence: None)
  Receive Date: 20061108
  Receipt Date: 20060727
  Transmission Date: 20070319
  Serious: Yes (Other)
  Sender: FDA-Public Use
  Company Number: GBWYE414228JUL06

PATIENT
  Sex: Male
  Weight: 74 kg

DRUGS (1)
  1. ENBREL [Suspect]
     Indication: RHEUMATOID ARTHRITIS
     Route: 058
     Dates: start: 20040326, end: 20060512

REACTIONS (9)
  - BLISTER [None]
  - DYSPHAGIA [None]
  - DYSPNOEA [None]
  - EYE SWELLING [None]
  - FURUNCLE [None]
  - HYPERSENSITIVITY [None]
  - LIP SWELLING [None]
  - PHARYNGOLARYNGEAL PAIN [None]
  - THROAT IRRITATION [None]
